FAERS Safety Report 17516834 (Version 1)
Quarter: 2020Q1

REPORT INFORMATION
  Report Type: Spontaneous
  Country: US (occurrence: US)
  Receive Date: 20200227
  Receipt Date: 20200227
  Transmission Date: 20200409
  Serious: Yes (Other)
  Sender: FDA-Public Use
  Company Number: None

PATIENT
  Age: 62 Year
  Sex: Female

DRUGS (19)
  1. POTASSIUM CHLORIDE. [Concomitant]
     Active Substance: POTASSIUM CHLORIDE
  2. OCEAN SALINE NASAL SPRAY [Concomitant]
     Active Substance: SODIUM CHLORIDE
  3. OMEPRAZOLE. [Concomitant]
     Active Substance: OMEPRAZOLE
  4. FUROSEMIDE. [Concomitant]
     Active Substance: FUROSEMIDE
  5. RIFAXIMIN. [Concomitant]
     Active Substance: RIFAXIMIN
  6. NARCAN [Concomitant]
     Active Substance: NALOXONE HYDROCHLORIDE
  7. SILDENAFIL. [Concomitant]
     Active Substance: SILDENAFIL
  8. ONDANSETRON [Concomitant]
     Active Substance: ONDANSETRON
  9. NORCO [Concomitant]
     Active Substance: ACETAMINOPHEN\HYDROCODONE BITARTRATE
  10. PHENYTOIN. [Concomitant]
     Active Substance: PHENYTOIN
  11. CARVEDILOL. [Concomitant]
     Active Substance: CARVEDILOL
  12. CAPSAICIN TOP CREAM [Concomitant]
  13. URSODIOL. [Concomitant]
     Active Substance: URSODIOL
  14. LOSARTAN. [Concomitant]
     Active Substance: LOSARTAN
  15. LACTULOSE ORAL SOLN [Concomitant]
  16. ATORVASTATIN [Concomitant]
     Active Substance: ATORVASTATIN
  17. AMBRISENTAN 10MG TABLETS 30/BO: 10MG [Suspect]
     Active Substance: AMBRISENTAN
     Indication: PULMONARY ARTERIAL HYPERTENSION
     Route: 048
     Dates: start: 201407
  18. LEVOTHYROXINE. [Concomitant]
     Active Substance: LEVOTHYROXINE
  19. CALCIUM CARBONATE-VIT D3 [Concomitant]

REACTIONS (7)
  - Confusional state [None]
  - Tremor [None]
  - Dysphemia [None]
  - Seizure [None]
  - Anticonvulsant drug level decreased [None]
  - Dizziness [None]
  - Gait disturbance [None]

NARRATIVE: CASE EVENT DATE: 20200207
